FAERS Safety Report 9910027 (Version 1)
Quarter: 2014Q1

REPORT INFORMATION
  Report Type: Spontaneous
  Country: US (occurrence: None)
  Receive Date: 20140212
  Receipt Date: 20140212
  Transmission Date: 20141002
  Serious: Yes (Death)
  Sender: FDA-Public Use
  Company Number: 2013-US-004175

PATIENT
  Age: 50 Year
  Sex: Male

DRUGS (4)
  1. PRIALT [Suspect]
     Indication: BACK PAIN
     Route: 037
  2. PRIALT [Suspect]
     Indication: PAIN
     Route: 037
  3. DILAUDID [Suspect]
     Indication: BACK PAIN
     Route: 037
  4. DILAUDID [Suspect]
     Indication: PAIN
     Route: 037

REACTIONS (2)
  - Malignant neoplasm progression [None]
  - Device power source issue [None]
